FAERS Safety Report 7804521-0 (Version None)
Quarter: 2011Q4

REPORT INFORMATION
  Report Type: 
  Country: None (occurrence: None)
  Receive Date: 20111010
  Receipt Date: 20111006
  Transmission Date: 20120403
  Serious: Yes (Hospitalization, Other)
  Sender: FDA-Public Use
  Company Number: PHHY2011AU88024

PATIENT
  Sex: Female

DRUGS (4)
  1. CHEMOTHERAPEUTICS NOS [Concomitant]
  2. BLOOD TRANSFUSION, AUXILIARY PRODUCTS [Concomitant]
     Dosage: 3 U WEEKLY
  3. EXJADE [Suspect]
     Dosage: 500 MG, UNK
  4. CALCIUM CARBONATE [Concomitant]

REACTIONS (2)
  - IRON OVERLOAD [None]
  - TERMINAL STATE [None]
